FAERS Safety Report 4950337-2 (Version None)
Quarter: 2006Q1

REPORT INFORMATION
  Report Type: 
  Country: None (occurrence: None)
  Receive Date: 20060315
  Receipt Date: 20060306
  Transmission Date: 20060701
  Serious: Yes (Other)
  Sender: FDA-Public Use
  Company Number: 222788

PATIENT
  Age: 78 Year
  Sex: Male

DRUGS (1)
  1. GRTPA (ALTEPLASE) PWDR + SOLVENT, INFUSION SOLN [Suspect]
     Dosage: INTRAVENOUS
     Route: 042

REACTIONS (2)
  - BRAIN HERNIATION [None]
  - BRAIN OEDEMA [None]
